FAERS Safety Report 14631625 (Version 11)
Quarter: 2018Q3

REPORT INFORMATION
  Report Type: Spontaneous
  Country: NL (occurrence: NL)
  Receive Date: 20180313
  Receipt Date: 20180817
  Transmission Date: 20181010
  Serious: Yes (Other)
  Sender: FDA-Public Use
  Company Number: NL-PFIZER INC-2018088860

PATIENT
  Age: 13 Month
  Sex: Male

DRUGS (4)
  1. VORICONAZOLE. [Interacting]
     Active Substance: VORICONAZOLE
     Dosage: 8 MG/KG, 3X/DAY (MAINTENANCE)
     Route: 042
  2. VORICONAZOLE. [Suspect]
     Active Substance: VORICONAZOLE
     Indication: ASPERGILLUS INFECTION
     Dosage: 9 MG/KG, 3X/DAY (LOADING DOSE)
     Route: 042
  3. VORICONAZOLE. [Interacting]
     Active Substance: VORICONAZOLE
     Dosage: 6 MG/KG, 3X/DAY
     Route: 042
  4. ITRACONAZOLE. [Interacting]
     Active Substance: ITRACONAZOLE
     Indication: PROPHYLAXIS
     Dosage: UNK

REACTIONS (5)
  - Drug level above therapeutic [Recovered/Resolved]
  - Drug administered to patient of inappropriate age [Unknown]
  - Hepatotoxicity [Recovering/Resolving]
  - Drug interaction [Unknown]
  - Cardiovascular insufficiency [Unknown]
